FAERS Safety Report 24273717 (Version 1)
Quarter: 2024Q3

REPORT INFORMATION
  Report Type: Spontaneous
  Country: US (occurrence: US)
  Receive Date: 20240902
  Receipt Date: 20240902
  Transmission Date: 20241017
  Serious: No
  Sender: ASTELLAS
  Company Number: US-ASTELLAS-2023US034249

PATIENT
  Sex: Male

DRUGS (1)
  1. XTANDI [Suspect]
     Active Substance: ENZALUTAMIDE
     Indication: Product used for unknown indication
     Dosage: 120 MG, ONCE DAILY (40 MG TABLETS (3 TABLETS DAILY))
     Route: 065
     Dates: start: 202310, end: 2023

REACTIONS (5)
  - Insomnia [Unknown]
  - Fatigue [Unknown]
  - Dizziness [Unknown]
  - Road traffic accident [Unknown]
  - Underdose [Unknown]

NARRATIVE: CASE EVENT DATE: 20231001
